FAERS Safety Report 7836122-2 (Version None)
Quarter: 2011Q4

REPORT INFORMATION
  Report Type: 
  Country: None (occurrence: None)
  Receive Date: 20111024
  Receipt Date: 20101028
  Transmission Date: 20120403
  Serious: No
  Sender: FDA-Public Use
  Company Number: US-ABBOTT-10P-163-0681948-00

PATIENT
  Sex: Female
  Weight: 71.278 kg

DRUGS (5)
  1. LUPRON DEPOT [Suspect]
     Indication: ENDOMETRIOSIS
     Route: 050
  2. ASMANEX TWISTHALER [Concomitant]
     Indication: ASTHMA
  3. LISINOPRIL [Concomitant]
     Indication: HYPERTENSION
  4. NORETHINDRONE ACETATE [Concomitant]
     Indication: ENDOMETRIOSIS
  5. PROAIR HFA [Concomitant]
     Indication: ASTHMA

REACTIONS (2)
  - RASH [None]
  - SWELLING [None]
